FAERS Safety Report 9501302 (Version 1)
Quarter: 2013Q1

REPORT INFORMATION
  Report Type: Spontaneous
  Country: US (occurrence: None)
  Receive Date: 20130107
  Receipt Date: 20130107
  Transmission Date: 20140127
  Serious: No
  Sender: FDA-Public Use
  Company Number: PHEH2012US021564

PATIENT
  Age: 54 Year
  Sex: Female

DRUGS (14)
  1. GILENYA [Suspect]
     Route: 048
  2. CYMBALTA (DULOXETINE HYDROCHLORIDE) [Concomitant]
  3. LISINOPRIL (LISINOPRIL) [Concomitant]
  4. LORAZEPAM [Concomitant]
  5. ASPIRIN (ACETYLSALICYLIC ACID) [Concomitant]
  6. SIMVASTATIN (SIMVASTATIN) [Concomitant]
  7. ZOLPIDEM (ZOLPIDEM) [Concomitant]
  8. VESICARE (SOLIFENACIN SUCCINATE) [Concomitant]
  9. OXCARBAZEPINE [Concomitant]
  10. ATENOLOL (ATENOLOL) [Concomitant]
  11. AMLODIPINE [Concomitant]
  12. VITAMIN D (ERGOCALCIFEROL) [Concomitant]
  13. MULTIPLE VITAMINS (ASCORBIC ACID, ERGOCALCIFEROL, FOLIC ACID, RETINOL, TOCOPHEROL, VITAMIN B NOS) [Concomitant]
  14. ZANTAC (RANITIDINE HYDROCHLORIDE) [Concomitant]

REACTIONS (2)
  - Fatigue [None]
  - Headache [None]
